FAERS Safety Report 21259298 (Version 1)
Quarter: 2022Q3

REPORT INFORMATION
  Report Type: Spontaneous
  Country: BR (occurrence: BR)
  Receive Date: 20220826
  Receipt Date: 20220826
  Transmission Date: 20221027
  Serious: No
  Sender: FDA-Public Use
  Company Number: BR-PFIZER INC-202200804391

PATIENT
  Sex: Male

DRUGS (1)
  1. CAVERJECT [Suspect]
     Active Substance: ALPROSTADIL
     Dosage: UNK

REACTIONS (4)
  - Injury associated with device [Unknown]
  - Injection site pain [Unknown]
  - Needle issue [Unknown]
  - Device leakage [Unknown]
